FAERS Safety Report 4987470-5 (Version None)
Quarter: 2006Q2

REPORT INFORMATION
  Report Type: 
  Country: None (occurrence: None)
  Receive Date: 20060501
  Receipt Date: 20041222
  Transmission Date: 20061013
  Serious: Yes (Hospitalization)
  Sender: FDA-Public Use
  Company Number: US-MERCK-0412USA02809

PATIENT
  Age: 71 Year
  Sex: Female
  Weight: 105 kg

DRUGS (2)
  1. VIOXX [Suspect]
     Indication: OSTEOARTHRITIS
     Route: 048
     Dates: start: 20000401, end: 20040101
  2. VIOXX [Suspect]
     Indication: INTERVERTEBRAL DISC DISORDER
     Route: 048
     Dates: start: 20000401, end: 20040101

REACTIONS (12)
  - ABDOMINAL PAIN UPPER [None]
  - ANAEMIA POSTOPERATIVE [None]
  - ARTHROPATHY [None]
  - DEEP VEIN THROMBOSIS [None]
  - DRUG INTOLERANCE [None]
  - HAEMORRHOIDS [None]
  - LOSS OF CONSCIOUSNESS [None]
  - MUSCLE SPASMS [None]
  - OEDEMA PERIPHERAL [None]
  - OSTEOARTHRITIS [None]
  - RECTAL HAEMORRHAGE [None]
  - THROMBOSIS [None]
